FAERS Safety Report 8105352-7 (Version None)
Quarter: 2012Q1

REPORT INFORMATION
  Report Type: 
  Country: None (occurrence: None)
  Receive Date: 20120201
  Receipt Date: 20120127
  Transmission Date: 20120608
  Serious: Yes (Other)
  Sender: FDA-Public Use
  Company Number: PHHY2012CA007778

PATIENT

DRUGS (1)
  1. AFINITOR [Suspect]
     Dosage: UNK UKN, UNK
     Route: 048

REACTIONS (2)
  - VITH NERVE PARALYSIS [None]
  - INTRACRANIAL PRESSURE INCREASED [None]
